FAERS Safety Report 4831848-7 (Version None)
Quarter: 2005Q4

REPORT INFORMATION
  Report Type: 
  Country: None (occurrence: None)
  Receive Date: 20051118
  Receipt Date: 20051027
  Transmission Date: 20060501
  Serious: Yes (Other)
  Sender: FDA-Public Use
  Company Number: US-SANOFI-SYNTHELABO-A03200503438

PATIENT
  Sex: Female
  Weight: 81.2 kg

DRUGS (1)
  1. ELOXATIN [Suspect]
     Indication: COLON CANCER STAGE III
     Route: 042
     Dates: start: 20040101, end: 20040101

REACTIONS (5)
  - BLOOD BILIRUBIN INCREASED [None]
  - HEPATIC STEATOSIS [None]
  - NEUROPATHY PERIPHERAL [None]
  - PANCYTOPENIA [None]
  - SPLENOMEGALY [None]
